FAERS Safety Report 8618685-2 (Version None)
Quarter: 2012Q3

REPORT INFORMATION
  Report Type: 
  Country: None (occurrence: None)
  Receive Date: 20120814
  Receipt Date: 20120814
  Transmission Date: 20120928
  Serious: No
  Sender: FDA-Public Use
  Company Number: None

PATIENT
  Age: 70 Year
  Sex: Male

DRUGS (4)
  1. CLOPIDOGREL BISULFATE [Suspect]
     Indication: PROPHYLAXIS
     Dosage: TAKE  1 TABLET DAILY
     Dates: start: 20110809
  2. CLOPIDOGREL BISULFATE [Suspect]
     Indication: MYOCARDIAL INFARCTION
     Dosage: TAKE  1 TABLET DAILY
     Dates: start: 20110809
  3. CLOPIDOGREL BISULFATE [Suspect]
     Indication: ANTICOAGULANT THERAPY
     Dosage: TAKE  1 TABLET DAILY
     Dates: start: 20110809
  4. . [Concomitant]
     Indication: CEREBROVASCULAR ACCIDENT PROPHYLAXIS

REACTIONS (2)
  - ABDOMINAL DISCOMFORT [None]
  - PRODUCT ODOUR ABNORMAL [None]
